FAERS Safety Report 25113392 (Version 1)
Quarter: 2025Q1

REPORT INFORMATION
  Report Type: Spontaneous
  Country: US (occurrence: None)
  Receive Date: 20250322
  Receipt Date: 20250322
  Transmission Date: 20250409
  Serious: Yes (Life-Threatening, Hospitalization)
  Sender: FDA-CTU
  Company Number: None

PATIENT
  Age: 60 Year
  Sex: Male
  Weight: 74 kg

DRUGS (2)
  1. .DELTA.9-TETRAHYDROCANNABINOL\HERBALS [Suspect]
     Active Substance: .DELTA.9-TETRAHYDROCANNABINOL\HERBALS
     Indication: Product used for unknown indication
     Dates: start: 20250222, end: 20250320
  2. CANNABINOL\HERBALS [Suspect]
     Active Substance: CANNABINOL\HERBALS

REACTIONS (3)
  - Hepatitis [None]
  - Rhabdomyolysis [None]
  - Suspected product contamination [None]

NARRATIVE: CASE EVENT DATE: 20250320
